FAERS Safety Report 17795080 (Version 1)
Quarter: 2020Q2

REPORT INFORMATION
  Report Type: Spontaneous
  Country: CA (occurrence: CA)
  Receive Date: 20200515
  Receipt Date: 20200515
  Transmission Date: 20200714
  Serious: Yes (Other)
  Sender: FDA-Public Use
  Company Number: CA-PFIZER INC-2020194679

PATIENT
  Age: 72 Year
  Sex: Male
  Weight: 174 kg

DRUGS (1)
  1. HYDROMORPHONE HYDROCHLORIDE. [Suspect]
     Active Substance: HYDROMORPHONE HYDROCHLORIDE
     Indication: PAIN
     Dosage: 0.5 MG, SINGLE
     Route: 058

REACTIONS (2)
  - Aggression [Recovered/Resolved]
  - Delirium [Recovered/Resolved]
